FAERS Safety Report 24331878 (Version 1)
Quarter: 2024Q3

REPORT INFORMATION
  Report Type: Spontaneous
  Country: PE (occurrence: PE)
  Receive Date: 20240918
  Receipt Date: 20240918
  Transmission Date: 20241016
  Serious: Yes (Other)
  Sender: JOHNSON AND JOHNSON
  Company Number: PE-JNJFOC-20240941765

PATIENT
  Age: 67 Year
  Sex: Male

DRUGS (1)
  1. DARZALEX [Suspect]
     Active Substance: DARATUMUMAB
     Indication: Plasma cell myeloma
     Dosage: DARZALEX 20 MG
     Route: 042
     Dates: start: 20240621

REACTIONS (1)
  - Spinal operation [Unknown]

NARRATIVE: CASE EVENT DATE: 20240828
